FAERS Safety Report 24718075 (Version 1)
Quarter: 2024Q4

REPORT INFORMATION
  Report Type: Spontaneous
  Country: FR (occurrence: FR)
  Receive Date: 20241210
  Receipt Date: 20241210
  Transmission Date: 20250114
  Serious: Yes (Hospitalization)
  Sender: TEVA
  Company Number: None

PATIENT
  Age: 82 Year
  Sex: Male
  Weight: 85 kg

DRUGS (1)
  1. CLOZAPINE [Suspect]
     Active Substance: CLOZAPINE
     Indication: Hallucination, visual
     Route: 048
     Dates: start: 20240830, end: 20241105

REACTIONS (1)
  - Febrile bone marrow aplasia [Not Recovered/Not Resolved]

NARRATIVE: CASE EVENT DATE: 20241105
